FAERS Safety Report 8369522-5 (Version None)
Quarter: 2012Q2

REPORT INFORMATION
  Report Type: 
  Country: None (occurrence: None)
  Receive Date: 20120518
  Receipt Date: 20120510
  Transmission Date: 20120825
  Serious: Yes (Life-Threatening, Hospitalization)
  Sender: FDA-Public Use
  Company Number: GB-COVIDIEN/TYCO HEALTHCARE/MALLINCKRODT-T201201723

PATIENT
  Sex: Female

DRUGS (2)
  1. OPTIRAY 160 [Suspect]
     Indication: ARTERIOGRAM CORONARY
     Dosage: 95 ML, SINGLE
     Route: 042
     Dates: start: 20120510, end: 20120510
  2. BETA BLOCKING AGENTS [Concomitant]

REACTIONS (2)
  - DRUG ADMINISTRATION ERROR [None]
  - AIR EMBOLISM [None]
